FAERS Safety Report 9787489 (Version 2)
Quarter: 2013Q4

REPORT INFORMATION
  Report Type: Report from Study
  Country: AU (occurrence: AU)
  Receive Date: 20131230
  Receipt Date: 20131230
  Transmission Date: 20140711
  Serious: Yes (Hospitalization)
  Sender: FDA-Public Use
  Company Number: AU-BRISTOL-MYERS SQUIBB COMPANY-19722529

PATIENT
  Age: 63 Year
  Sex: Female

DRUGS (9)
  1. BYETTA [Suspect]
     Indication: TYPE 2 DIABETES MELLITUS
     Dosage: 10MCG
     Route: 058
     Dates: start: 20130923
  2. METFORMIN HCL [Suspect]
  3. COVERSYL [Concomitant]
  4. ATACAND [Concomitant]
  5. VYTORIN [Concomitant]
  6. THYROXINE [Concomitant]
  7. LASIX [Concomitant]
  8. ASPIRIN [Concomitant]
  9. MIXTARD 30/70 [Concomitant]
     Dosage: 8 UNIT IN THE MORNING AND NIGHT

REACTIONS (3)
  - Limb operation [Unknown]
  - Abdominal distension [Unknown]
  - Blood glucose fluctuation [Unknown]
